FAERS Safety Report 9830687 (Version 1)
Quarter: 2014Q1

REPORT INFORMATION
  Report Type: Spontaneous
  Country: AU (occurrence: AU)
  Receive Date: 20140120
  Receipt Date: 20140120
  Transmission Date: 20141002
  Serious: Yes (Life-Threatening)
  Sender: FDA-Public Use
  Company Number: AU-BAYER-2014-006822

PATIENT
  Age: 26 Year
  Sex: 0

DRUGS (2)
  1. SOTALOL [Suspect]
     Indication: ATRIAL FIBRILLATION
     Dosage: 40 MG, UNK
     Route: 048
  2. DIGOXIN [Concomitant]

REACTIONS (1)
  - Circulatory collapse [Recovered/Resolved]
